FAERS Safety Report 8172239-3 (Version None)
Quarter: 2012Q1

REPORT INFORMATION
  Report Type: 
  Country: None (occurrence: None)
  Receive Date: 20120229
  Receipt Date: 20120222
  Transmission Date: 20120608
  Serious: Yes (Hospitalization)
  Sender: FDA-Public Use
  Company Number: FR-SP-2011-07589

PATIENT
  Sex: Male

DRUGS (2)
  1. QUESTRAN [Concomitant]
     Indication: DYSLIPIDAEMIA
  2. IMMUCYST [Suspect]
     Indication: BLADDER CANCER
     Route: 043
     Dates: start: 20091021, end: 20110711

REACTIONS (7)
  - DECREASED APPETITE [None]
  - PYREXIA [None]
  - COUGH [None]
  - DYSPNOEA [None]
  - HYPERSENSITIVITY [None]
  - DISSEMINATED TUBERCULOSIS [None]
  - HEADACHE [None]
